FAERS Safety Report 7619598-5 (Version None)
Quarter: 2011Q3

REPORT INFORMATION
  Report Type: 
  Country: None (occurrence: None)
  Receive Date: 20110719
  Receipt Date: 20080813
  Transmission Date: 20111222
  Serious: Yes (Hospitalization, Other)
  Sender: FDA-Public Use
  Company Number: US-BAYER-200831061NA

PATIENT
  Age: 59 Year
  Sex: Male
  Weight: 75 kg

DRUGS (16)
  1. TRASYLOL [Suspect]
     Indication: HEART VALVE REPLACEMENT
     Dosage: 1 ML INITIAL TEST DOSE
     Route: 042
     Dates: start: 19941028, end: 19941028
  2. NIPRIDE [Concomitant]
     Dosage: UNK
     Route: 042
     Dates: start: 19941028, end: 19941028
  3. COUMADIN [Concomitant]
     Dosage: UNK
     Route: 048
  4. MIDAZOLAM HCL [Concomitant]
     Dosage: UNK
     Route: 042
     Dates: start: 19941028, end: 19941028
  5. PLASMA [Concomitant]
     Dosage: 8 U, ONCE
     Route: 042
     Dates: start: 19941028
  6. AMRINONE [Concomitant]
     Dosage: UNK
     Route: 042
     Dates: start: 19941028, end: 19941028
  7. RED BLOOD CELLS [Concomitant]
     Dosage: 2 U, ONCE
     Route: 042
     Dates: start: 19941028
  8. NITROGLYCERIN [Concomitant]
     Dosage: UNK
     Route: 042
     Dates: start: 19941028, end: 19941028
  9. DIGOXIN [Concomitant]
     Dosage: UNK
     Route: 048
  10. VASOTEC [Concomitant]
     Dosage: UNK
     Route: 048
  11. LASIX [Concomitant]
     Dosage: UNK
     Route: 048
  12. KEFZOL [Concomitant]
     Dosage: 1 GM
     Route: 042
     Dates: start: 19941028, end: 19941028
  13. PROTAMINE SULFATE [Concomitant]
     Dosage: 280 MG
     Route: 042
     Dates: start: 19941028, end: 19941028
  14. TRASYLOL [Suspect]
     Indication: AORTIC SURGERY
     Dosage: 1,000,000 MILLION UNITS
     Route: 042
     Dates: start: 19941028, end: 19941028
  15. LASIX [Concomitant]
     Dosage: UNK
     Route: 042
     Dates: start: 19941028, end: 19941028
  16. DOBUTAMINE HCL [Concomitant]
     Dosage: UNK
     Route: 042
     Dates: start: 19941028, end: 19941028

REACTIONS (8)
  - RENAL FAILURE ACUTE [None]
  - UNEVALUABLE EVENT [None]
  - BLINDNESS [None]
  - INJURY [None]
  - PAIN [None]
  - CEREBROVASCULAR ACCIDENT [None]
  - EMOTIONAL DISTRESS [None]
  - RENAL INJURY [None]
